FAERS Safety Report 10391437 (Version 1)
Quarter: 2014Q3

REPORT INFORMATION
  Report Type: Spontaneous
  Country: US (occurrence: US)
  Receive Date: 20140818
  Receipt Date: 20140818
  Transmission Date: 20150326
  Serious: Yes (Death, Hospitalization)
  Sender: FDA-Public Use
  Company Number: US-B.I. PHARMACEUTICALS,INC./RIDGEFIELD-2014-BI-37518BP

PATIENT
  Age: 82 Year
  Sex: Female

DRUGS (17)
  1. PRIMIDONE. [Concomitant]
     Active Substance: PRIMIDONE
     Dosage: 50 MG
     Route: 048
  2. OMEPRAZOLE. [Concomitant]
     Active Substance: OMEPRAZOLE
     Dosage: 40 MG
     Route: 048
  3. CARDIZEM [Concomitant]
     Active Substance: DILTIAZEM HYDROCHLORIDE
     Indication: ANGINA PECTORIS
  4. VICODIN [Concomitant]
     Active Substance: ACETAMINOPHEN\HYDROCODONE BITARTRATE
     Dosage: DOSE PER APPLICATION AND DAILY DOSE : 5/500MG
     Route: 048
  5. GLUCOPHAGE [Concomitant]
     Active Substance: METFORMIN HYDROCHLORIDE
     Dosage: 2 G
     Route: 048
  6. AMBIEN [Concomitant]
     Active Substance: ZOLPIDEM TARTRATE
     Indication: INSOMNIA
     Dosage: 10 MG
     Route: 048
  7. NORVASC [Concomitant]
     Active Substance: AMLODIPINE BESYLATE
     Dosage: 10 MG
     Route: 048
  8. PRADAXA [Suspect]
     Active Substance: DABIGATRAN ETEXILATE MESYLATE
     Indication: ATRIAL FIBRILLATION
     Dosage: 300 MG
     Route: 048
     Dates: start: 2012, end: 20120615
  9. SYNTHROID [Concomitant]
     Active Substance: LEVOTHYROXINE SODIUM
     Dosage: 75 MCG
     Route: 048
  10. ESKALITH [Concomitant]
     Active Substance: LITHIUM CARBONATE
     Dosage: 900 MG
     Route: 048
  11. PRADAXA [Suspect]
     Active Substance: DABIGATRAN ETEXILATE MESYLATE
     Indication: ANTICOAGULANT THERAPY
  12. CARDIZEM [Concomitant]
     Active Substance: DILTIAZEM HYDROCHLORIDE
     Indication: ATRIAL FIBRILLATION
     Dosage: 360 MG
     Route: 048
  13. CARDIZEM [Concomitant]
     Active Substance: DILTIAZEM HYDROCHLORIDE
     Indication: HYPERTENSION
  14. AMLODIPINE [Concomitant]
     Active Substance: AMLODIPINE BESYLATE
     Dosage: 10 MG
     Route: 048
  15. PRADAXA [Suspect]
     Active Substance: DABIGATRAN ETEXILATE MESYLATE
     Indication: PROPHYLAXIS
  16. ZOCOR [Concomitant]
     Active Substance: SIMVASTATIN
     Dosage: 20 MG
     Route: 048
  17. PAXIL [Concomitant]
     Active Substance: PAROXETINE HYDROCHLORIDE
     Dosage: 10 MG
     Route: 048

REACTIONS (3)
  - Cerebrovascular accident [Fatal]
  - Gastrointestinal haemorrhage [Unknown]
  - Haemorrhagic anaemia [Unknown]

NARRATIVE: CASE EVENT DATE: 201206
